FAERS Safety Report 23218259 (Version 1)
Quarter: 2023Q4

REPORT INFORMATION
  Report Type: Spontaneous
  Country: US (occurrence: US)
  Receive Date: 20231122
  Receipt Date: 20231122
  Transmission Date: 20240109
  Serious: No
  Sender: FDA-Public Use
  Company Number: US-PERRIGO-23US007033

PATIENT
  Age: 69 Year
  Sex: Female
  Weight: 51.247 kg

DRUGS (1)
  1. NICOTINE POLACRILEX [Suspect]
     Active Substance: NICOTINE
     Indication: COVID-19
     Dosage: UNKNOWN, UNKNOWN
     Route: 002
     Dates: start: 20230527, end: 20230527

REACTIONS (1)
  - Off label use [Unknown]

NARRATIVE: CASE EVENT DATE: 20230527
